FAERS Safety Report 6509800-5 (Version None)
Quarter: 2009Q4

REPORT INFORMATION
  Report Type: 
  Country: None (occurrence: None)
  Receive Date: 20091221
  Receipt Date: 20091221
  Transmission Date: 20100525
  Serious: No
  Sender: FDA-Public Use
  Company Number: None

PATIENT
  Age: 39 Year
  Sex: Female
  Weight: 117.9352 kg

DRUGS (1)
  1. LEVAQUIN [Suspect]
     Indication: PNEUMONIA
     Dosage: ONCE PER DAY PO
     Route: 048
     Dates: start: 20091209, end: 20091217

REACTIONS (7)
  - ABASIA [None]
  - ARTHRALGIA [None]
  - HEADACHE [None]
  - IMPAIRED WORK ABILITY [None]
  - OEDEMA [None]
  - PAIN IN EXTREMITY [None]
  - QUALITY OF LIFE DECREASED [None]
